FAERS Safety Report 16464282 (Version 1)
Quarter: 2019Q3

REPORT INFORMATION
  Report Type: Spontaneous
  Country: US (occurrence: US)
  Receive Date: 20190620
  Receipt Date: 20190620
  Transmission Date: 20191004
  Serious: Yes (Hospitalization, Disabling)
  Sender: FDA-Public Use
  Company Number: None

PATIENT
  Age: 30 Year
  Sex: Female
  Weight: 117 kg

DRUGS (1)
  1. ACETAZOLAMIDE. [Suspect]
     Active Substance: ACETAZOLAMIDE
     Indication: IDIOPATHIC INTRACRANIAL HYPERTENSION
     Dates: start: 20170701, end: 20181201

REACTIONS (9)
  - Renal injury [None]
  - Gallbladder disorder [None]
  - Burning sensation [None]
  - Haematuria [None]
  - Fatigue [None]
  - Muscle contractions involuntary [None]
  - Neurological symptom [None]
  - Paraesthesia [None]
  - Hypersensitivity [None]

NARRATIVE: CASE EVENT DATE: 20180613
